FAERS Safety Report 7235888-2 (Version None)
Quarter: 2011Q1

REPORT INFORMATION
  Report Type: 
  Country: None (occurrence: None)
  Receive Date: 20110120
  Receipt Date: 20110111
  Transmission Date: 20110831
  Serious: Yes (Other)
  Sender: FDA-Public Use
  Company Number: DE-ASTRAZENECA-2011SE01709

PATIENT
  Sex: Female

DRUGS (5)
  1. MIRTAZAPIN [Concomitant]
  2. LAMOTRIGINE [Concomitant]
  3. SEROQUEL [Suspect]
     Indication: DEPRESSION
     Route: 048
  4. SEROQUEL [Suspect]
     Route: 048
  5. ZYPRALEX [Concomitant]

REACTIONS (2)
  - AUTOIMMUNE THYROIDITIS [None]
  - FEELING ABNORMAL [None]
